FAERS Safety Report 13680157 (Version 2)
Quarter: 2017Q3

REPORT INFORMATION
  Report Type: Spontaneous
  Country: US (occurrence: US)
  Receive Date: 20170622
  Receipt Date: 20170914
  Transmission Date: 20171127
  Serious: Yes (Other)
  Sender: FDA-Public Use
  Company Number: US-BRISTOL-MYERS SQUIBB COMPANY-BMS-2017-054612

PATIENT
  Sex: Female

DRUGS (4)
  1. PREDNISONE. [Concomitant]
     Active Substance: PREDNISONE
     Indication: LEUKAEMIA
     Dosage: 20 MG, UNK
     Route: 065
     Dates: start: 20170522, end: 20170721
  2. METHOTREXATE. [Concomitant]
     Active Substance: METHOTREXATE
     Indication: LEUKAEMIA
     Dosage: 10 MG, UNK
     Route: 048
     Dates: start: 20160816, end: 20170718
  3. MERCAPTOPURINE. [Concomitant]
     Active Substance: MERCAPTOPURINE
     Indication: LEUKAEMIA
     Dosage: 50 MG, BID
     Route: 048
     Dates: start: 20161206
  4. SPRYCEL [Suspect]
     Active Substance: DASATINIB
     Indication: ACUTE LYMPHOCYTIC LEUKAEMIA
     Dosage: 140 MG, QD
     Route: 048
     Dates: start: 20150922, end: 20170531

REACTIONS (4)
  - Pulmonary hypertension [Unknown]
  - Pleural effusion [Unknown]
  - Dyspnoea exertional [Unknown]
  - Oedema peripheral [Unknown]
